FAERS Safety Report 20940507 (Version 2)
Quarter: 2022Q2

REPORT INFORMATION
  Report Type: Spontaneous
  Country: CN (occurrence: CN)
  Receive Date: 20220609
  Receipt Date: 20220623
  Transmission Date: 20220721
  Serious: Yes (Hospitalization, Other)
  Sender: FDA-Public Use
  Company Number: CN-TEVA-2022-CN-2043494

PATIENT
  Age: 29 Year
  Sex: Female

DRUGS (15)
  1. CYCLOSPORINE [Suspect]
     Active Substance: CYCLOSPORINE
     Indication: Antiphospholipid syndrome
     Dosage: 150 MILLIGRAM DAILY; THREE TIMES DAILY
     Route: 065
  2. ASPIRIN [Suspect]
     Active Substance: ASPIRIN
     Indication: Antiphospholipid syndrome
     Dosage: 75 MILLIGRAM DAILY; THREE TIMES DAILY; ENTERIC-COATED TABLETS
     Route: 048
  3. HYDROXYCHLOROQUINE [Suspect]
     Active Substance: HYDROXYCHLOROQUINE
     Indication: Antiphospholipid syndrome
     Dosage: 300 MILLIGRAM DAILY; THREE TIMES DAILY
     Route: 065
  4. PREDNISONE [Suspect]
     Active Substance: PREDNISONE
     Indication: Antiphospholipid syndrome
     Dosage: 7.5 MILLIGRAM DAILY;
     Route: 048
  5. PREDNISONE [Suspect]
     Active Substance: PREDNISONE
     Indication: Impetigo herpetiformis
     Route: 048
  6. PREDNISONE [Suspect]
     Active Substance: PREDNISONE
     Route: 048
  7. DYDROGESTERONE [Suspect]
     Active Substance: DYDROGESTERONE
     Indication: Vaginal haemorrhage
     Dosage: 30 MILLIGRAM DAILY; THREE TIMES DAILY
     Route: 065
  8. CEFOPERAZONE [Suspect]
     Active Substance: CEFOPERAZONE
     Indication: Evidence based treatment
     Dosage: 2 G PER DOSE INJECTION; RECEIVED 3 DOSES
     Route: 065
  9. SULBACTAM SODIUM [Suspect]
     Active Substance: SULBACTAM SODIUM
     Indication: Evidence based treatment
     Dosage: 2 G PER DOSE INJECTION; RECEIVED THREE DOSES
     Route: 065
  10. IMMUNE GLOBULIN NOS [Suspect]
     Active Substance: IMMUNE GLOBULIN NOS
     Indication: Impetigo herpetiformis
     Dosage: 20 GRAM DAILY;
     Route: 042
  11. AZITHROMYCIN [Suspect]
     Active Substance: AZITHROMYCIN
     Indication: Infection prophylaxis
     Dosage: .5 GRAM DAILY;
     Route: 065
  12. ENOXAPARIN [Suspect]
     Active Substance: ENOXAPARIN
     Indication: Anticoagulant therapy
     Dosage: 4000 U
     Route: 058
  13. ACETAMINOPHEN [Suspect]
     Active Substance: ACETAMINOPHEN
     Indication: Antipyresis
     Route: 065
  14. METHYLPREDNISOLONE [Suspect]
     Active Substance: METHYLPREDNISOLONE
     Indication: Impetigo herpetiformis
     Dosage: 60 MILLIGRAM DAILY;
     Route: 042
  15. ALBUMIN HUMAN [Suspect]
     Active Substance: ALBUMIN HUMAN
     Indication: Hypoalbuminaemia
     Route: 041

REACTIONS (4)
  - Impetigo herpetiformis [Recovered/Resolved]
  - Drug ineffective [Recovered/Resolved]
  - Stillbirth [Unknown]
  - Maternal exposure during pregnancy [Unknown]
